FAERS Safety Report 8229999-2 (Version None)
Quarter: 2012Q1

REPORT INFORMATION
  Report Type: 
  Country: None (occurrence: None)
  Receive Date: 20120323
  Receipt Date: 20120320
  Transmission Date: 20120608
  Serious: No
  Sender: FDA-Public Use
  Company Number: US-BIOGENIDEC-2012BI009913

PATIENT
  Sex: Male

DRUGS (4)
  1. TYSABRI [Suspect]
     Indication: MULTIPLE SCLEROSIS
     Route: 042
     Dates: start: 20050120, end: 20050223
  2. TYSABRI [Suspect]
     Route: 042
     Dates: start: 20070215, end: 20100726
  3. AVONEX [Concomitant]
     Indication: MULTIPLE SCLEROSIS
     Route: 030
     Dates: start: 19990701
  4. TYSABRI [Suspect]
     Route: 042
     Dates: start: 20110110

REACTIONS (1)
  - MOBILITY DECREASED [None]
